FAERS Safety Report 9168809 (Version 2)
Quarter: 2013Q2

REPORT INFORMATION
  Report Type: Spontaneous
  Country: US (occurrence: US)
  Receive Date: 20130318
  Receipt Date: 20130523
  Transmission Date: 20140414
  Serious: Yes (Other)
  Sender: FDA-Public Use
  Company Number: US-AMGEN-USASP2013016457

PATIENT
  Age: 60 Year
  Sex: Female

DRUGS (5)
  1. PROLIA [Suspect]
     Indication: OSTEOPOROSIS POSTMENOPAUSAL
     Dosage: 60 MG, Q6MO
     Dates: start: 20110505
  2. SYNTHROID [Concomitant]
  3. PREVACID [Concomitant]
     Dosage: 30 MG, QD
     Route: 048
  4. VITAMIN D                          /00107901/ [Concomitant]
     Dosage: 40 MG, QD
     Route: 048
  5. CALCIUM AND VIT D [Concomitant]
     Dosage: 500 MG, BID
     Route: 048

REACTIONS (1)
  - Neoplasm [Unknown]
